FAERS Safety Report 16378744 (Version 6)
Quarter: 2021Q3

REPORT INFORMATION
  Report Type: Report from Study
  Country: JP (occurrence: JP)
  Receive Date: 20190531
  Receipt Date: 20210709
  Transmission Date: 20211014
  Serious: Yes (Other)
  Sender: FDA-Public Use
  Company Number: JP-JNJFOC-20190534010

PATIENT
  Age: 27 Year
  Sex: Male
  Weight: 57 kg

DRUGS (14)
  1. KANAMYCIN SULFATE [Concomitant]
     Active Substance: KANAMYCIN SULFATE
     Indication: PULMONARY TUBERCULOSIS
     Route: 065
     Dates: start: 20180402
  2. SIRTURO [Suspect]
     Active Substance: BEDAQUILINE FUMARATE
     Indication: PULMONARY TUBERCULOSIS
     Route: 048
     Dates: start: 20181212, end: 20190830
  3. MAGNESIUM OXIDE. [Concomitant]
     Active Substance: MAGNESIUM OXIDE
     Indication: CONSTIPATION
     Route: 048
     Dates: start: 20181212, end: 20190108
  4. LOXOPROFEN SODIUM [Concomitant]
     Active Substance: LOXOPROFEN SODIUM
     Indication: CHEST PAIN
     Route: 048
     Dates: start: 20181212
  5. SIRTURO [Suspect]
     Active Substance: BEDAQUILINE FUMARATE
     Indication: PULMONARY TUBERCULOSIS
     Route: 048
     Dates: start: 20180905, end: 20181206
  6. CODEINE PHOSPHATE [Concomitant]
     Active Substance: CODEINE PHOSPHATE
     Indication: COUGH
     Route: 048
     Dates: start: 20181212
  7. ALUMINO?NIPPAS CALCIUM [Suspect]
     Active Substance: AMINOSALICYLATE CALCIUM ALUMINIUM
     Route: 048
     Dates: start: 20180530
  8. REBAMIPIDE [Concomitant]
     Active Substance: REBAMIPIDE
     Indication: NAUSEA
     Route: 048
     Dates: start: 20181227
  9. SIRTURO [Suspect]
     Active Substance: BEDAQUILINE FUMARATE
     Indication: PULMONARY TUBERCULOSIS
     Route: 048
     Dates: start: 20180822, end: 20180904
  10. CYCLOSERINE. [Suspect]
     Active Substance: CYCLOSERINE
     Indication: PULMONARY TUBERCULOSIS
     Route: 048
     Dates: start: 20180402, end: 20181016
  11. LINEZOLID. [Suspect]
     Active Substance: LINEZOLID
     Indication: PULMONARY TUBERCULOSIS
     Route: 048
     Dates: start: 20180402
  12. ALUMINO?NIPPAS CALCIUM [Suspect]
     Active Substance: AMINOSALICYLATE CALCIUM ALUMINIUM
     Indication: PULMONARY TUBERCULOSIS
     Dosage: TOTAL DAILY DOSE: 11G
     Route: 048
  13. CRAVIT [Suspect]
     Active Substance: LEVOFLOXACIN
     Indication: PULMONARY TUBERCULOSIS
     Route: 048
     Dates: start: 20180530
  14. MOSAPRIDE CITRATE [Concomitant]
     Active Substance: MOSAPRIDE CITRATE
     Indication: DECREASED APPETITE
     Route: 048
     Dates: start: 20190524

REACTIONS (6)
  - Nausea [Not Recovered/Not Resolved]
  - Constipation [Recovered/Resolved]
  - Cough [Not Recovered/Not Resolved]
  - Delirium [Recovered/Resolved]
  - Chest pain [Not Recovered/Not Resolved]
  - Decreased appetite [Not Recovered/Not Resolved]

NARRATIVE: CASE EVENT DATE: 20181013
